FAERS Safety Report 17349449 (Version 5)
Quarter: 2020Q1

REPORT INFORMATION
  Report Type: Report from Study
  Country: DE (occurrence: DE)
  Receive Date: 20200130
  Receipt Date: 20200330
  Transmission Date: 20200409
  Serious: Yes (Life-Threatening, Hospitalization, Other)
  Sender: FDA-Public Use
  Company Number: DE-BRISTOL-MYERS SQUIBB COMPANY-BMS-2019-126217

PATIENT
  Age: 61 Year
  Sex: Male
  Weight: 81 kg

DRUGS (10)
  1. LENALIDOMIDE [Suspect]
     Active Substance: LENALIDOMIDE
     Indication: PLASMA CELL MYELOMA
     Dosage: 15 MILLIGRAM, QD
     Route: 048
     Dates: start: 20181220
  2. CARFILZOMIB [Suspect]
     Active Substance: CARFILZOMIB
     Indication: PRODUCT USED FOR UNKNOWN INDICATION
     Dosage: 39.8 MG (20 MG/M2)
     Route: 041
  3. DEXAMETHASONE. [Suspect]
     Active Substance: DEXAMETHASONE
     Indication: PLASMA CELL MYELOMA
     Dosage: 28 MG DAY 1, X 5, 20 MG DAY 8 AND 22
     Route: 048
     Dates: start: 20181220
  4. CLEXANE [Concomitant]
     Active Substance: ENOXAPARIN SODIUM
     Indication: THROMBOSIS PROPHYLAXIS
     Dosage: 40 MILLIGRAM, QD
     Route: 058
     Dates: start: 201910
  5. PANTOPRAZOLE [Concomitant]
     Active Substance: PANTOPRAZOLE
     Indication: PROPHYLAXIS AGAINST GASTROINTESTINAL ULCER
     Dosage: 40 MILLIGRAM, QD (1-0-0)
     Route: 048
     Dates: start: 20190807, end: 20200116
  6. ELOTUZUMAB. [Suspect]
     Active Substance: ELOTUZUMAB
     Indication: PLASMA CELL MYELOMA
     Dosage: 800 MG (10 MG/KG) ON D1, D8 AND D15 OF A CYCLE 1 OF A 28-DAY CYCLE
     Route: 041
     Dates: start: 20181220
  7. CARFILZOMIB [Suspect]
     Active Substance: CARFILZOMIB
     Indication: PLASMA CELL MYELOMA
     Dosage: 39.2 MG (20 MG/M2), INFUSION OVER 30 MINUTES, ON D1 -D2 OF CYCLE 1 OF A 28-DAY CYCLE
     Route: 041
     Dates: start: 20181220
  8. COTRIM FORTE [Concomitant]
     Active Substance: SULFAMETHOXAZOLE\TRIMETHOPRIM
     Indication: INFECTION PROPHYLAXIS
     Dosage: 3 X 960 MILLIGRAM IN 1 WEEK
     Route: 048
     Dates: start: 20190809, end: 20200117
  9. ACICLOVIR [Concomitant]
     Active Substance: ACYCLOVIR
     Indication: ANTIVIRAL PROPHYLAXIS
     Dosage: 400 MILLIGRAM, QD FOR PROPHYLAXIS HERPES ZOSTER
     Route: 048
     Dates: start: 20190807, end: 20200119
  10. ENOXAPARIN [Concomitant]
     Active Substance: ENOXAPARIN
     Indication: THROMBOSIS
     Dosage: 40 MILLIGRAM
     Route: 058
     Dates: start: 20181220, end: 20200119

REACTIONS (5)
  - Pyrexia [Unknown]
  - Thrombotic microangiopathy [Recovered/Resolved]
  - Atypical pneumonia [Unknown]
  - Influenza virus test [Recovered/Resolved]
  - Acute kidney injury [Recovering/Resolving]

NARRATIVE: CASE EVENT DATE: 20200116
